FAERS Safety Report 6267994-3 (Version None)
Quarter: 2009Q3

REPORT INFORMATION
  Report Type: 
  Country: None (occurrence: None)
  Receive Date: 20090713
  Receipt Date: 20090701
  Transmission Date: 20100115
  Serious: Yes (Other)
  Sender: FDA-Public Use
  Company Number: CHPA2009US14583

PATIENT
  Age: 77 Year
  Sex: Female

DRUGS (2)
  1. THERAPEUTIC MINERAL ICE (NCH) (MENTHOL) GEL [Suspect]
     Indication: PAIN IN EXTREMITY
     Dosage: TOPICAL
     Route: 061
  2. LORTAB [Suspect]
     Indication: ANALGESIA
     Dosage: ORAL
     Route: 048
     Dates: start: 20090601

REACTIONS (5)
  - ABDOMINAL PAIN [None]
  - DRUG INEFFECTIVE [None]
  - DRUG INTERACTION [None]
  - INTENTIONAL DRUG MISUSE [None]
  - UPPER LIMB FRACTURE [None]
